FAERS Safety Report 20736665 (Version 1)
Quarter: 2022Q2

REPORT INFORMATION
  Report Type: Spontaneous
  Country: US (occurrence: None)
  Receive Date: 20220420
  Receipt Date: 20220420
  Transmission Date: 20220721
  Serious: Yes (Disabling)
  Sender: FDA-Public Use
  Company Number: None

PATIENT
  Age: 67 Year
  Sex: Female
  Weight: 47.25 kg

DRUGS (1)
  1. PEG-3350, SODIUM CHLORIDE, SODIUM BICARBONATE AND POTASSIUM CHLORIDE [Suspect]
     Active Substance: POLYETHYLENE GLYCOL 3350\POTASSIUM CHLORIDE\SODIUM BICARBONATE\SODIUM CHLORIDE
     Indication: Bowel preparation
     Dosage: OTHER QUANTITY : 1 GLASS;?OTHER FREQUENCY : AS DIRECTED;?
     Route: 048
     Dates: start: 2022, end: 20220418

REACTIONS (5)
  - Nausea [None]
  - Nasal congestion [None]
  - Abdominal distension [None]
  - Chills [None]
  - Myalgia [None]

NARRATIVE: CASE EVENT DATE: 20220416
